FAERS Safety Report 5256482-9 (Version None)
Quarter: 2007Q1

REPORT INFORMATION
  Report Type: 
  Country: None (occurrence: None)
  Receive Date: 20070306
  Receipt Date: 20070216
  Transmission Date: 20070707
  Serious: Yes (Other)
  Sender: FDA-Public Use
  Company Number: BE-GLAXOSMITHKLINE-B0449325A

PATIENT
  Age: 60 Year
  Sex: Female
  Weight: 68 kg

DRUGS (10)
  1. LAMOTRIGINE [Suspect]
     Indication: BIPOLAR DISORDER
     Route: 048
  2. LITHIUM CARBONATE [Suspect]
     Indication: ANTIDEPRESSANT THERAPY
     Route: 065
  3. MIRTAZAPINE [Suspect]
     Indication: ANTIDEPRESSANT THERAPY
     Route: 065
  4. SERTRALINE [Concomitant]
  5. TRAZODONE HCL [Concomitant]
  6. AMEZINIUM [Concomitant]
  7. SULFASALAZINE [Concomitant]
     Indication: RHEUMATOID ARTHRITIS
  8. GLUCOSAMINE [Concomitant]
     Indication: RHEUMATOID ARTHRITIS
  9. CALCIUM + VITAMIN D [Concomitant]
     Indication: RHEUMATOID ARTHRITIS
  10. AREDIA [Concomitant]

REACTIONS (8)
  - ARTHRALGIA [None]
  - ENERGY INCREASED [None]
  - HEADACHE [None]
  - INSOMNIA [None]
  - MANIA [None]
  - MOOD ALTERED [None]
  - NAUSEA [None]
  - PAIN [None]
